FAERS Safety Report 14663906 (Version 1)
Quarter: 2018Q1

REPORT INFORMATION
  Report Type: Spontaneous
  Country: US (occurrence: US)
  Receive Date: 20180321
  Receipt Date: 20180321
  Transmission Date: 20180509
  Serious: No
  Sender: FDA-Public Use
  Company Number: US-B.I. PHARMACEUTICALS,INC./RIDGEFIELD-2018-BI-014523

PATIENT
  Sex: Male

DRUGS (2)
  1. ATROVENT [Suspect]
     Active Substance: IPRATROPIUM BROMIDE
     Indication: CHRONIC RESPIRATORY FAILURE
     Dosage: FORM STRENGTH: 17 MCG;  ACTION(S) TAKEN WITH PRODUCT: DOSE NOT CHANGED
     Route: 055
  2. ATROVENT [Suspect]
     Active Substance: IPRATROPIUM BROMIDE
     Indication: BRONCHOPULMONARY DYSPLASIA

REACTIONS (2)
  - Product use in unapproved indication [Unknown]
  - Drug administered to patient of inappropriate age [Unknown]
